FAERS Safety Report 19449502 (Version 1)
Quarter: 2021Q2

REPORT INFORMATION
  Report Type: Spontaneous
  Country: CN (occurrence: CN)
  Receive Date: 20210622
  Receipt Date: 20210622
  Transmission Date: 20210717
  Serious: Yes (Hospitalization, Other)
  Sender: FDA-Public Use
  Company Number: CN-009507513-2106CHN004916

PATIENT
  Age: 62 Year
  Sex: Male
  Weight: 55 kg

DRUGS (6)
  1. KEYTRUDA [Suspect]
     Active Substance: PEMBROLIZUMAB
     Indication: OESOPHAGEAL CARCINOMA
     Dosage: 200 MG, ONCE A DAY
     Route: 041
     Dates: start: 20210508, end: 20210508
  2. JIE BAI SHU [Suspect]
     Active Substance: NEDAPLATIN
     Indication: OESOPHAGEAL CARCINOMA
     Dosage: 130 MG, ONCE A DAY
     Route: 041
     Dates: start: 20210508, end: 20210508
  3. PACLITAXEL FOR INJECTION (ALBUMIN BOUND) [Suspect]
     Active Substance: PACLITAXEL
     Indication: OESOPHAGEAL CARCINOMA
     Dosage: 400 MG, ONCE A DAY
     Route: 041
     Dates: start: 20210508, end: 20210508
  4. SODIUM CHLORID [Concomitant]
     Indication: MEDICATION DILUTION
     Dosage: 500 ML, ONCE A DAY
     Route: 041
     Dates: start: 20210508, end: 20210508
  5. SODIUM CHLORID [Concomitant]
     Dosage: 100 ML, ONCE A DAY
     Route: 041
     Dates: start: 20210508, end: 20210508
  6. SODIUM CHLORID [Concomitant]
     Dosage: 100 ML, ONCE A DAY
     Route: 041
     Dates: start: 20210508, end: 20210508

REACTIONS (2)
  - White blood cell count decreased [Recovering/Resolving]
  - Neutrophil count decreased [Recovering/Resolving]

NARRATIVE: CASE EVENT DATE: 20210523
